FAERS Safety Report 14095848 (Version 1)
Quarter: 2017Q4

REPORT INFORMATION
  Report Type: Spontaneous
  Country: CA (occurrence: CA)
  Receive Date: 20171016
  Receipt Date: 20171016
  Transmission Date: 20180321
  Serious: Yes (Hospitalization, Other)
  Sender: FDA-Public Use
  Company Number: CA-PURDUE PHARMA-CAN-2017-0007938

PATIENT
  Age: 26 Year
  Sex: Male

DRUGS (2)
  1. HYDROMORPHONE HYDROCHLORIDE. [Suspect]
     Active Substance: HYDROMORPHONE HYDROCHLORIDE
     Indication: DRUG USE DISORDER
     Dosage: UNK
     Route: 065
     Dates: start: 20170730
  2. METHAMPHETAMINE [Suspect]
     Active Substance: METHAMPHETAMINE
     Indication: DRUG USE DISORDER
     Dosage: UNK
     Route: 051

REACTIONS (4)
  - Hallucination, auditory [Unknown]
  - Abnormal behaviour [Unknown]
  - Substance abuse [Unknown]
  - Overdose [Unknown]

NARRATIVE: CASE EVENT DATE: 20170730
